FAERS Safety Report 21088517 (Version 1)
Quarter: 2022Q3

REPORT INFORMATION
  Report Type: Spontaneous
  Country: US (occurrence: None)
  Receive Date: 20220715
  Receipt Date: 20220715
  Transmission Date: 20221027
  Serious: Yes (Other)
  Sender: FDA-Public Use
  Company Number: None

PATIENT
  Age: 93 Year
  Sex: Female
  Weight: 45 kg

DRUGS (1)
  1. FENTANYL TRANSDERMAL SYSTEM [Suspect]
     Active Substance: FENTANYL
     Indication: Pain
     Dosage: OTHER STRENGTH : MCG/HR;?OTHER QUANTITY : 1 PATCH(ES);?OTHER FREQUENCY : EVERY 3 DAYS;?
     Route: 062
     Dates: start: 20220709, end: 20220710

REACTIONS (7)
  - Hallucination, auditory [None]
  - Vomiting [None]
  - Agitation [None]
  - Restlessness [None]
  - Cognitive disorder [None]
  - Illness [None]
  - Fatigue [None]

NARRATIVE: CASE EVENT DATE: 20220710
